FAERS Safety Report 22087656 (Version 1)
Quarter: 2023Q1

REPORT INFORMATION
  Report Type: Spontaneous
  Country: US (occurrence: US)
  Receive Date: 20230313
  Receipt Date: 20230313
  Transmission Date: 20230418
  Serious: Yes (Other)
  Sender: FDA-Public Use
  Company Number: US-AUROBINDO-AUR-APL-2023-010945

PATIENT
  Sex: Male

DRUGS (1)
  1. COLD-EEZE (ZINC GLUCONATE) [Suspect]
     Active Substance: HOMEOPATHICS\ZINC GLUCONATE
     Indication: Oropharyngeal pain
     Dosage: UNK
     Route: 065

REACTIONS (1)
  - Choking [Unknown]
